FAERS Safety Report 11106906 (Version 1)
Quarter: 2015Q2

REPORT INFORMATION
  Report Type: Spontaneous
  Country: US (occurrence: None)
  Receive Date: 20150511
  Receipt Date: 20150511
  Transmission Date: 20150821
  Serious: Yes (Other)
  Sender: FDA-Public Use
  Company Number: None

PATIENT
  Age: 50 Year
  Sex: Male

DRUGS (1)
  1. SPRYCEL [Suspect]
     Active Substance: DASATINIB
     Dosage: STRENGTH:  70

REACTIONS (3)
  - Palpitations [None]
  - Feeling abnormal [None]
  - Dizziness [None]

NARRATIVE: CASE EVENT DATE: 20150508
